FAERS Safety Report 4801676-7 (Version None)
Quarter: 2005Q4

REPORT INFORMATION
  Report Type: 
  Country: None (occurrence: None)
  Receive Date: 20051018
  Receipt Date: 20050811
  Transmission Date: 20060501
  Serious: Yes (Other)
  Sender: FDA-Public Use
  Company Number: US-GLAXOSMITHKLINE-A0569818A

PATIENT
  Age: 50 Year
  Sex: Male
  Weight: 65 kg

DRUGS (2)
  1. LAMICTAL [Suspect]
     Route: 048
     Dates: start: 20050523, end: 20050815
  2. LIPITOR [Concomitant]

REACTIONS (1)
  - FAECAL INCONTINENCE [None]
